FAERS Safety Report 4480975-5 (Version None)
Quarter: 2004Q4

REPORT INFORMATION
  Report Type: 
  Country: None (occurrence: None)
  Receive Date: 20041021
  Receipt Date: 20040813
  Transmission Date: 20050328
  Serious: Yes (Hospitalization, Other)
  Sender: FDA-Public Use
  Company Number: SE-AMGEN-US083712

PATIENT
  Sex: Female

DRUGS (5)
  1. ENBREL [Suspect]
     Indication: RHEUMATOID ARTHRITIS
     Route: 058
     Dates: start: 19980301, end: 19991206
  2. ACETAMINOPHEN [Concomitant]
  3. WARAN [Concomitant]
     Route: 047
     Dates: start: 19960101
  4. CALCICHEW [Concomitant]
     Route: 047
  5. OMEPRAZOLE [Concomitant]
     Route: 048

REACTIONS (3)
  - CHRONIC OBSTRUCTIVE AIRWAYS DISEASE [None]
  - EMPHYSEMA [None]
  - PULMONARY FIBROSIS [None]
